FAERS Safety Report 14237532 (Version 1)
Quarter: 2017Q4

REPORT INFORMATION
  Report Type: Report from Study
  Country: US (occurrence: US)
  Receive Date: 20171129
  Receipt Date: 20171129
  Transmission Date: 20180321
  Serious: Yes (Hospitalization, Other)
  Sender: FDA-Public Use
  Company Number: US-GILEAD-2017-0306844

PATIENT
  Age: 63 Year
  Sex: Female

DRUGS (1)
  1. RANOLAZINE. [Suspect]
     Active Substance: RANOLAZINE
     Indication: ANGINA PECTORIS
     Dosage: 1000 MG, UNK
     Route: 048
     Dates: start: 2013

REACTIONS (10)
  - Intestinal perforation [Unknown]
  - Vascular graft [Unknown]
  - Diverticulitis [Unknown]
  - Pulmonary thrombosis [Unknown]
  - Drug dose omission [Unknown]
  - Oropharyngeal pain [Unknown]
  - Malaise [Unknown]
  - Thrombosis [Unknown]
  - Stent placement [Unknown]
  - Nasopharyngitis [Unknown]
